FAERS Safety Report 21965451 (Version 5)
Quarter: 2023Q1

REPORT INFORMATION
  Report Type: Spontaneous
  Country: US (occurrence: US)
  Receive Date: 20230208
  Receipt Date: 20230315
  Transmission Date: 20230417
  Serious: Yes (Other)
  Sender: FDA-Public Use
  Company Number: US-GLAXOSMITHKLINE-US2023018005

PATIENT

DRUGS (3)
  1. ZEJULA [Suspect]
     Active Substance: NIRAPARIB
     Indication: Ovarian cancer
     Dosage: 100 MG, QD
     Dates: start: 20230124
  2. ZEJULA [Suspect]
     Active Substance: NIRAPARIB
     Dosage: 200 MG, QD
     Route: 048
  3. ZEJULA [Suspect]
     Active Substance: NIRAPARIB
     Dosage: 200 MG, QD

REACTIONS (9)
  - Seizure [Unknown]
  - Abdominal pain upper [Unknown]
  - Pain [Unknown]
  - Constipation [Unknown]
  - Blood potassium decreased [Unknown]
  - Memory impairment [Recovering/Resolving]
  - Sleep disorder [Unknown]
  - Headache [Unknown]
  - Dizziness [Unknown]
